FAERS Safety Report 7742890-0 (Version None)
Quarter: 2011Q3

REPORT INFORMATION
  Report Type: 
  Country: None (occurrence: None)
  Receive Date: 20110831
  Receipt Date: 20110826
  Transmission Date: 20111222
  Serious: Yes (Life-Threatening, Hospitalization, Disabling, Other)
  Sender: FDA-Public Use
  Company Number: 2011SP040628

PATIENT
  Age: 34 Year
  Sex: Female

DRUGS (7)
  1. INVEGA [Suspect]
     Indication: PRODUCT USED FOR UNKNOWN INDICATION
     Dosage: 9 MG;QD, 3 MG;QD, 9 MG;QD
     Dates: end: 20110601
  2. INVEGA [Suspect]
     Indication: PRODUCT USED FOR UNKNOWN INDICATION
     Dosage: 9 MG;QD, 3 MG;QD, 9 MG;QD
     Dates: start: 20110601
  3. LAMICTAL [Concomitant]
  4. SAPHRIS [Suspect]
     Indication: SCHIZOAFFECTIVE DISORDER
     Dosage: 5 MG;BID;PO, 10 MG;BID;PO
     Route: 048
     Dates: start: 20110601
  5. SAPHRIS [Suspect]
     Indication: DEPRESSION
     Dosage: 5 MG;BID;PO, 10 MG;BID;PO
     Route: 048
     Dates: start: 20110601
  6. KLONOPIN [Concomitant]
  7. PROPRANOLOL [Concomitant]

REACTIONS (2)
  - SUICIDE ATTEMPT [None]
  - OVERDOSE [None]
